FAERS Safety Report 10037314 (Version 1)
Quarter: 2014Q1

REPORT INFORMATION
  Report Type: Spontaneous
  Country: UA (occurrence: None)
  Receive Date: 20140324
  Receipt Date: 20140324
  Transmission Date: 20141002
  Serious: Yes (Other)
  Sender: FDA-Public Use
  Company Number: B0977228A

PATIENT
  Age: 9 Year
  Sex: Female

DRUGS (2)
  1. TOPOTECAN HYDROCHLORIDE [Suspect]
     Indication: NEUROBLASTOMA
     Dosage: UNK
  2. CYCLOPHOSPHAMIDE (FORMULATION UNKNOWN) (CYCLOPHOSPHAMIDE) [Suspect]
     Indication: NEUROBLASTOMA
     Dosage: UNK

REACTIONS (3)
  - Grand mal convulsion [None]
  - Neurotoxicity [None]
  - Neurosis [None]
